FAERS Safety Report 5046126-3 (Version None)
Quarter: 2006Q2

REPORT INFORMATION
  Report Type: 
  Country: None (occurrence: None)
  Receive Date: 20060629
  Receipt Date: 20060620
  Transmission Date: 20061013
  Serious: Yes (Hospitalization)
  Sender: FDA-Public Use
  Company Number: 2006BI007386

PATIENT
  Age: 51 Year
  Sex: Male

DRUGS (10)
  1. AVONEX [Suspect]
     Indication: MULTIPLE SCLEROSIS
     Dosage: 30 UG; QW; IM
     Route: 030
     Dates: start: 20060505, end: 20060506
  2. LASIX [Concomitant]
  3. K-DUR 10 [Concomitant]
  4. RISPERDAL [Concomitant]
  5. ZOLOFT [Concomitant]
  6. TOPROL-XL [Concomitant]
  7. OMEPRAZOLE [Concomitant]
  8. QUININE SULFATE [Concomitant]
  9. ASPIRIN [Concomitant]
  10. FORADIL [Concomitant]

REACTIONS (1)
  - ANGINA UNSTABLE [None]
